FAERS Safety Report 18443363 (Version 1)
Quarter: 2020Q4

REPORT INFORMATION
  Report Type: Spontaneous
  Country: US (occurrence: US)
  Receive Date: 20201029
  Receipt Date: 20201029
  Transmission Date: 20210114
  Serious: Yes (Hospitalization, Other)
  Sender: FDA-Public Use
  Company Number: US-ELI_LILLY_AND_COMPANY-US202010008987

PATIENT
  Age: 77 Year
  Sex: Male

DRUGS (1)
  1. TADALAFIL. [Suspect]
     Active Substance: TADALAFIL
     Indication: URINARY RETENTION
     Dosage: UNK UNK, DAILY
     Route: 065

REACTIONS (5)
  - Inappropriate schedule of product administration [Unknown]
  - Cerebral haemorrhage [Recovered/Resolved with Sequelae]
  - Off label use [Unknown]
  - Vision blurred [Unknown]
  - Cerebral haemorrhage [Unknown]
